FAERS Safety Report 10221824 (Version 1)
Quarter: 2014Q2

REPORT INFORMATION
  Report Type: Spontaneous
  Country: BR (occurrence: BR)
  Receive Date: 20140606
  Receipt Date: 20140606
  Transmission Date: 20141212
  Serious: No
  Sender: FDA-Public Use
  Company Number: BR-BIOMARINAP-BR-2013-101184

PATIENT
  Sex: Female

DRUGS (1)
  1. NAGLAZYME [Suspect]
     Indication: MUCOPOLYSACCHARIDOSIS VI

REACTIONS (2)
  - Inguinal hernia [Unknown]
  - Umbilical hernia [Unknown]
